FAERS Safety Report 13879590 (Version 2)
Quarter: 2017Q3

REPORT INFORMATION
  Report Type: Report from Study
  Country: None (occurrence: AT)
  Receive Date: 20170818
  Receipt Date: 20170914
  Transmission Date: 20171127
  Serious: Yes (Hospitalization)
  Sender: FDA-Public Use
  Company Number: AT-ABBVIE-17K-009-2074414-00

PATIENT
  Age: 70 Year
  Sex: Female

DRUGS (2)
  1. DUODOPA [Suspect]
     Active Substance: CARBIDOPA\LEVODOPA
     Route: 050
  2. DUODOPA [Suspect]
     Active Substance: CARBIDOPA\LEVODOPA
     Indication: PARKINSON^S DISEASE
     Dosage: 16 H THERAPY:?MD: 8 ML?CR DAYTIME: 3.5 ML/H?ED: 2 ML
     Route: 050
     Dates: start: 20120625

REACTIONS (4)
  - Device occlusion [Recovered/Resolved]
  - Femur fracture [Unknown]
  - Fall [Unknown]
  - Neurological rehabilitation [Unknown]

NARRATIVE: CASE EVENT DATE: 2017
